FAERS Safety Report 4442445-X (Version None)
Quarter: 2004Q3

REPORT INFORMATION
  Report Type: 
  Country: None (occurrence: None)
  Receive Date: 20040903
  Receipt Date: 20040507
  Transmission Date: 20050211
  Serious: Yes (Other)
  Sender: FDA-Public Use
  Company Number: 2004UW09522

PATIENT
  Age: 78 Year
  Sex: Female
  Weight: 58.9676 kg

DRUGS (1)
  1. CRESTOR [Suspect]
     Indication: BLOOD CHOLESTEROL INCREASED
     Dates: start: 20040301, end: 20040401

REACTIONS (5)
  - ASTHENIA [None]
  - CONSTIPATION [None]
  - JOINT STIFFNESS [None]
  - MYALGIA [None]
  - TENDERNESS [None]
